FAERS Safety Report 8780088 (Version 1)
Quarter: 2012Q4

REPORT INFORMATION
  Report Type: Spontaneous
  Country: US (occurrence: None)
  Receive Date: 20120831
  Receipt Date: 20120831
  Transmission Date: 20130627
  Serious: No
  Sender: FDA-Public Use
  Company Number: None

PATIENT
  Age: 63 Year
  Sex: Female
  Weight: 86.37 kg

DRUGS (1)
  1. METOPROLOL ER [Suspect]
     Dosage: 50mg 1 1/2 tab qday P.O.
     Route: 048
     Dates: start: 20120630, end: 20120702

REACTIONS (3)
  - Migraine [None]
  - Nausea [None]
  - Heart rate increased [None]
